FAERS Safety Report 4908811-0 (Version None)
Quarter: 2006Q1

REPORT INFORMATION
  Report Type: 
  Country: None (occurrence: None)
  Receive Date: 20060210
  Receipt Date: 20051129
  Transmission Date: 20060701
  Serious: No
  Sender: FDA-Public Use
  Company Number: US-GLAXOSMITHKLINE-A0583865A

PATIENT
  Age: 81 Year
  Sex: Female

DRUGS (7)
  1. PAXIL CR [Suspect]
     Indication: DEPRESSION
     Dosage: 37.5MG PER DAY
     Route: 048
     Dates: end: 20051126
  2. LEXAPRO [Concomitant]
  3. SYMMETREL [Concomitant]
  4. REQUIP [Concomitant]
  5. STALEVO 100 [Concomitant]
  6. SEROQUEL [Concomitant]
  7. XANAX [Concomitant]

REACTIONS (6)
  - ANXIETY [None]
  - BALANCE DISORDER [None]
  - DIZZINESS [None]
  - DRUG INEFFECTIVE [None]
  - INSOMNIA [None]
  - PAIN IN EXTREMITY [None]
